FAERS Safety Report 16415354 (Version 2)
Quarter: 2019Q2

REPORT INFORMATION
  Report Type: Spontaneous
  Country: US (occurrence: US)
  Receive Date: 20190611
  Receipt Date: 20190627
  Transmission Date: 20190711
  Serious: Yes (Other)
  Sender: FDA-Public Use
  Company Number: US-009507513-1906USA002226

PATIENT
  Age: 18 Year
  Sex: Female
  Weight: 83.45 kg

DRUGS (1)
  1. NEXPLANON [Suspect]
     Active Substance: ETONOGESTREL
     Indication: CONTRACEPTION
     Dosage: 1 IMPLANT IN THE LEFT ARM
     Route: 059
     Dates: start: 20190201, end: 20190423

REACTIONS (3)
  - Pregnancy with implant contraceptive [Unknown]
  - Device deployment issue [Recovered/Resolved]
  - Unintended pregnancy [Unknown]

NARRATIVE: CASE EVENT DATE: 2019
